FAERS Safety Report 14572506 (Version 3)
Quarter: 2018Q2

REPORT INFORMATION
  Report Type: Report from Study
  Country: JP (occurrence: JP)
  Receive Date: 20180226
  Receipt Date: 20180523
  Transmission Date: 20180711
  Serious: Yes (Death, Life-Threatening, Hospitalization)
  Sender: FDA-Public Use
  Company Number: JP-ACTELION-A-CH2016-140242

PATIENT
  Age: 35 Year
  Sex: Female

DRUGS (26)
  1. OPSUMIT [Suspect]
     Active Substance: MACITENTAN
     Indication: PULMONARY ARTERIAL HYPERTENSION
     Dosage: 10 MG, QD
     Route: 048
     Dates: start: 20151126, end: 20180113
  2. TREPROST [Suspect]
     Active Substance: TREPROSTINIL
     Indication: PULMONARY ARTERIAL HYPERTENSION
     Dosage: 1 DF, UNK
     Route: 042
     Dates: start: 20160824, end: 20161108
  3. TREPROST [Suspect]
     Active Substance: TREPROSTINIL
     Dosage: UNK DF, UNK
     Route: 042
     Dates: start: 20180111
  4. ADEMPAS [Suspect]
     Active Substance: RIOCIGUAT
     Indication: PULMONARY ARTERIAL HYPERTENSION
     Dosage: 3-4.5MG/ DAY
     Route: 048
     Dates: start: 20151216, end: 20160107
  5. SAMSCA [Concomitant]
     Active Substance: TOLVAPTAN
     Indication: PRODUCT USED FOR UNKNOWN INDICATION
  6. SILDENAFIL. [Concomitant]
     Active Substance: SILDENAFIL
     Indication: PRODUCT USED FOR UNKNOWN INDICATION
  7. BENZALIN [Concomitant]
     Active Substance: NITRAZEPAM
  8. ENALAPRIL [Concomitant]
     Active Substance: ENALAPRIL
     Indication: PRODUCT USED FOR UNKNOWN INDICATION
  9. TOLVAPTAN [Concomitant]
     Active Substance: TOLVAPTAN
     Indication: PRODUCT USED FOR UNKNOWN INDICATION
  10. OXYGEN. [Concomitant]
     Active Substance: OXYGEN
     Indication: PRODUCT USED FOR UNKNOWN INDICATION
  11. FLOLAN [Suspect]
     Active Substance: EPOPROSTENOL SODIUM
     Dosage: 255 NG/KG, PER MIN
     Route: 042
     Dates: start: 20161109, end: 20180111
  12. TADALAFIL [Concomitant]
     Active Substance: TADALAFIL
     Indication: PRODUCT USED FOR UNKNOWN INDICATION
     Dosage: UNK
  13. DELLEGRA [Concomitant]
     Active Substance: FEXOFENADINE HYDROCHLORIDE\PSEUDOEPHEDRINE HYDROCHLORIDE
  14. PRANLUKAST [Concomitant]
     Active Substance: PRANLUKAST
  15. COLONEL [Concomitant]
     Active Substance: CALCIUM POLYCARBOPHIL
  16. FAMOTIDINE. [Concomitant]
     Active Substance: FAMOTIDINE
     Indication: PRODUCT USED FOR UNKNOWN INDICATION
  17. BERBERINE HYDROCHLORIDE W/GERANIUM THUNBERGII [Concomitant]
     Indication: PRODUCT USED FOR UNKNOWN INDICATION
  18. LOPERAMIDE HYDROCHLORIDE. [Concomitant]
     Active Substance: LOPERAMIDE HYDROCHLORIDE
     Indication: PRODUCT USED FOR UNKNOWN INDICATION
  19. ENSURE COMPLETE [Concomitant]
  20. FLOLAN [Suspect]
     Active Substance: EPOPROSTENOL SODIUM
     Indication: PULMONARY ARTERIAL HYPERTENSION
     Dosage: UNK
     Route: 042
     Dates: start: 200502, end: 20160823
  21. DILTIAZEM. [Concomitant]
     Active Substance: DILTIAZEM
     Indication: PRODUCT USED FOR UNKNOWN INDICATION
  22. FUROSEMIDE. [Concomitant]
     Active Substance: FUROSEMIDE
     Indication: PRODUCT USED FOR UNKNOWN INDICATION
  23. ZOLPIDEM [Concomitant]
     Active Substance: ZOLPIDEM\ZOLPIDEM TARTRATE
     Indication: PRODUCT USED FOR UNKNOWN INDICATION
  24. SPIRONOLACTONE. [Concomitant]
     Active Substance: SPIRONOLACTONE
  25. DILAZEP HYDROCHLORIDE [Concomitant]
     Active Substance: DILAZEP DIHYDROCHLORIDE
     Indication: PRODUCT USED FOR UNKNOWN INDICATION
  26. NEXIUM [Concomitant]
     Active Substance: ESOMEPRAZOLE MAGNESIUM

REACTIONS (26)
  - Epistaxis [Recovered/Resolved]
  - Urine output decreased [Recovered/Resolved]
  - Capillary permeability increased [Recovering/Resolving]
  - Haemorrhagic hepatic cyst [Not Recovered/Not Resolved]
  - Shock [Fatal]
  - Aspartate aminotransferase [Not Recovered/Not Resolved]
  - Vomiting [Not Recovered/Not Resolved]
  - Nausea [Not Recovered/Not Resolved]
  - Diarrhoea [Not Recovered/Not Resolved]
  - Sepsis [Fatal]
  - Pulmonary hypertension [Recovering/Resolving]
  - Prerenal failure [Not Recovered/Not Resolved]
  - Cardiac failure [Recovered/Resolved]
  - Alanine aminotransferase increased [Not Recovered/Not Resolved]
  - Dehydration [Not Recovered/Not Resolved]
  - Device related infection [Recovered/Resolved]
  - Anaemia [Recovered/Resolved]
  - Weight increased [Recovered/Resolved]
  - Substance-induced psychotic disorder [Recovering/Resolving]
  - Transfusion [Unknown]
  - Platelet count decreased [Unknown]
  - Haematemesis [Fatal]
  - Septic shock [Fatal]
  - Renal impairment [Recovered/Resolved]
  - Blood alkaline phosphatase abnormal [Not Recovered/Not Resolved]
  - Blood pressure decreased [Fatal]

NARRATIVE: CASE EVENT DATE: 201512
